FAERS Safety Report 11108266 (Version 4)
Quarter: 2015Q2

REPORT INFORMATION
  Report Type: Report from Study
  Country: FR (occurrence: FR)
  Receive Date: 20150512
  Receipt Date: 20150605
  Transmission Date: 20150821
  Serious: Yes (Hospitalization, Other)
  Sender: FDA-Public Use
  Company Number: FR-B.I. PHARMACEUTICALS,INC./RIDGEFIELD-2015-BI-24096BI

PATIENT
  Age: 77 Year
  Sex: Female
  Weight: 71 kg

DRUGS (4)
  1. ASPIRIN. [Concomitant]
     Active Substance: ASPIRIN
     Indication: STENT PLACEMENT
     Dosage: 75 MG
     Route: 065
     Dates: start: 20150317
  2. CLOPIDOGREL [Concomitant]
     Active Substance: CLOPIDOGREL BISULFATE
     Indication: ATRIAL FIBRILLATION
     Dosage: 75 MG
     Route: 048
     Dates: start: 20141204, end: 20150327
  3. DABIGATRAN [Suspect]
     Active Substance: DABIGATRAN
     Indication: ATRIAL FIBRILLATION
     Dosage: 110 MG
     Route: 048
     Dates: start: 20150124, end: 20150317
  4. KARDEGIC [Concomitant]
     Active Substance: ASPIRIN LYSINE
     Indication: ATRIAL FIBRILLATION
     Dosage: 75 MG
     Route: 048
     Dates: start: 20150317

REACTIONS (4)
  - Metastases to liver [Not Recovered/Not Resolved]
  - Metastasis [Unknown]
  - Malignant ascites [Unknown]
  - Oedema [Recovered/Resolved]

NARRATIVE: CASE EVENT DATE: 20150317
